APPROVED DRUG PRODUCT: TRIFERIC AVNU
Active Ingredient: FERRIC PYROPHOSPHATE CITRATE
Strength: 6.75MG IRON/4.5ML (1.5MG IRON/ML)
Dosage Form/Route: SOLUTION;INTRAVENOUS
Application: N212860 | Product #001
Applicant: ROCKWELL MEDICAL INC
Approved: Mar 27, 2020 | RLD: Yes | RS: No | Type: DISCN

PATENTS:
Patent 7816404 | Expires: Apr 17, 2029